FAERS Safety Report 14782095 (Version 1)
Quarter: 2018Q2

REPORT INFORMATION
  Report Type: Spontaneous
  Country: FR (occurrence: FR)
  Receive Date: 20180420
  Receipt Date: 20180420
  Transmission Date: 20180711
  Serious: Yes (Hospitalization)
  Sender: FDA-Public Use
  Company Number: FR-TEVA-2018-FR-882488

PATIENT
  Age: 78 Year
  Sex: Male
  Weight: 67 kg

DRUGS (3)
  1. ESCITALOPRAM [Suspect]
     Active Substance: ESCITALOPRAM OXALATE
     Indication: DEPRESSION
     Dosage: 1 CP
     Route: 048
  2. MODOPAR [Suspect]
     Active Substance: BENSERAZIDE HYDROCHLORIDE\LEVODOPA
     Dosage: 1CP
     Route: 048
  3. MODOPAR [Suspect]
     Active Substance: BENSERAZIDE HYDROCHLORIDE\LEVODOPA
     Indication: PARKINSON^S DISEASE
     Dosage: 1 CP? 62,5 (50 MG/12,5 MG), G?LULE
     Route: 048

REACTIONS (3)
  - Disorientation [Recovered/Resolved]
  - Persecutory delusion [Recovered/Resolved]
  - Hallucination, visual [Recovered/Resolved]
